FAERS Safety Report 9825149 (Version 1)
Quarter: 2013Q4

REPORT INFORMATION
  Report Type: Spontaneous
  Country: US (occurrence: None)
  Receive Date: 20131028
  Receipt Date: 20131028
  Transmission Date: 20140711
  Serious: Yes (Other)
  Sender: FDA-Public Use
  Company Number: 2013US002302

PATIENT
  Age: 76 Year
  Sex: Female
  Weight: 78 kg

DRUGS (11)
  1. ICLUSIG [Suspect]
     Indication: ACUTE LYMPHOCYTIC LEUKAEMIA
     Route: 048
     Dates: start: 20130523
  2. SYNTHROID (LEVOTHYROXINE SODIUM) [Concomitant]
  3. LISINOPRIL (LISINOPRIL) [Concomitant]
  4. K-DUR (POTASSUM CHLORIDE) [Concomitant]
  5. NAPROSYN (NAPROXEN SODIUM) [Concomitant]
  6. NEURONTIN (GABAPENTIN) [Concomitant]
  7. OXYCODONE (OXYCODONE) [Concomitant]
  8. VITAMIN D (COLECALCIFEROL) [Concomitant]
  9. LASIX (FUROSEMIDE) [Concomitant]
  10. ALBUTEROL (ALBUTEROL) [Concomitant]
  11. ZOLOFT (SERTRALINE HYDROCHLORIDE) [Concomitant]

REACTIONS (1)
  - Anaemia [None]
